FAERS Safety Report 22185369 (Version 1)
Quarter: 2023Q2

REPORT INFORMATION
  Report Type: Report from Study
  Country: CA (occurrence: CA)
  Receive Date: 20230407
  Receipt Date: 20230407
  Transmission Date: 20230722
  Serious: Yes (Other)
  Sender: FDA-Public Use
  Company Number: CA-SAMSUNG BIOEPIS-SB-2023-09134

PATIENT
  Age: 43 Year
  Sex: Female

DRUGS (2)
  1. ETANERCEPT [Suspect]
     Active Substance: ETANERCEPT
     Indication: Wagner^s disease
     Dosage: 50 MG/ML;
     Route: 065
     Dates: start: 20171026
  2. NALTREXONE [Concomitant]
     Active Substance: NALTREXONE
     Indication: Product used for unknown indication
     Route: 065

REACTIONS (4)
  - Post-acute COVID-19 syndrome [Not Recovered/Not Resolved]
  - Pneumonia [Unknown]
  - Autoimmune disorder [Unknown]
  - Product use in unapproved indication [Unknown]
